FAERS Safety Report 7560258-7 (Version None)
Quarter: 2011Q2

REPORT INFORMATION
  Report Type: 
  Country: None (occurrence: None)
  Receive Date: 20110621
  Receipt Date: 20110616
  Transmission Date: 20111010
  Serious: Yes (Hospitalization, Other)
  Sender: FDA-Public Use
  Company Number: US-PFIZER INC-2011004980

PATIENT
  Sex: Female
  Weight: 54.422 kg

DRUGS (6)
  1. LITHIUM [Suspect]
     Dosage: UNK
     Dates: start: 20100901, end: 20100901
  2. COLACE [Concomitant]
     Dosage: UNK
  3. NEURONTIN [Suspect]
     Dosage: 300 MG, 4X/DAY
     Route: 048
     Dates: end: 20110101
  4. NEURONTIN [Suspect]
     Indication: MOOD SWINGS
     Dosage: 300 MG, 2X/DAY
     Route: 048
     Dates: start: 20101206
  5. ZYPREXA [Suspect]
     Dosage: 30 MG DAILY
     Route: 048
     Dates: start: 20101001
  6. VITAMIN D [Concomitant]
     Dosage: UNK

REACTIONS (9)
  - TOOTH INFECTION [None]
  - PARAESTHESIA [None]
  - THYROID DISORDER [None]
  - DRUG INEFFECTIVE [None]
  - JOINT SWELLING [None]
  - AGGRESSION [None]
  - OEDEMA PERIPHERAL [None]
  - HOSTILITY [None]
  - GINGIVITIS [None]
